FAERS Safety Report 24705558 (Version 4)
Quarter: 2025Q1

REPORT INFORMATION
  Report Type: Spontaneous
  Country: US (occurrence: US)
  Receive Date: 20241206
  Receipt Date: 20250130
  Transmission Date: 20250409
  Serious: Yes (Hospitalization, Other)
  Sender: SANOFI AVENTIS
  Company Number: US-SA-2024SA357262

PATIENT
  Age: 59 Year
  Sex: Female
  Weight: 62.14 kg

DRUGS (17)
  1. FABRAZYME [Suspect]
     Active Substance: AGALSIDASE BETA
     Indication: Fabry^s disease
     Dosage: 70 MG, QOW
     Route: 042
     Dates: start: 201609
  2. SODIUM CHLORIDE [Concomitant]
     Active Substance: SODIUM CHLORIDE
  3. HEPARIN [Concomitant]
     Active Substance: HEPARIN SODIUM
     Dates: start: 20211229
  4. DIPHENHYDRAMINE [Concomitant]
     Active Substance: DIPHENHYDRAMINE
  5. STERILE WATER [Concomitant]
     Active Substance: WATER
  6. CEPHALEXIN [Concomitant]
     Active Substance: CEPHALEXIN
  7. CALCIUM CARBONATE [Concomitant]
     Active Substance: CALCIUM CARBONATE
     Dosage: 1 DF, BID
     Route: 048
  8. LIDOCAINE\PRILOCAINE [Concomitant]
     Active Substance: LIDOCAINE\PRILOCAINE
     Route: 061
  9. VITAMIN D3 [Concomitant]
     Active Substance: CHOLECALCIFEROL
     Dosage: 1 DF, QD
     Route: 048
  10. DIPHENHYDRAMINE [Concomitant]
     Active Substance: DIPHENHYDRAMINE
  11. BETAMETHASONE DIPROPIONATE [Concomitant]
     Active Substance: BETAMETHASONE DIPROPIONATE
     Dosage: UNK, QD(APPLY A THIN LAYER TO THE AFFECTED AREA(S) ONCE DAILY AS NEEDED)
     Route: 061
  12. MONTELUKAST [Concomitant]
     Active Substance: MONTELUKAST
  13. METRONIDAZOLE [Concomitant]
     Active Substance: METRONIDAZOLE
     Dosage: 1 DF, Q12H
     Route: 048
  14. RAMIPRIL [Concomitant]
     Active Substance: RAMIPRIL
     Dosage: 1 DF, QD(IN EVENING)
     Route: 048
  15. LINZESS [Concomitant]
     Active Substance: LINACLOTIDE
     Indication: Irritable bowel syndrome
     Dosage: 1 DF, QD
     Route: 048
  16. INFLUENZA VIRUS VACCINE [Concomitant]
     Active Substance: INFLUENZA VIRUS VACCINE
     Route: 030
     Dates: start: 20231212, end: 20231212
  17. INFLUENZA VIRUS VACCINE [Concomitant]
     Active Substance: INFLUENZA VIRUS VACCINE
     Route: 065
     Dates: start: 20210927, end: 20210927

REACTIONS (31)
  - Sinus node dysfunction [Unknown]
  - Syncope [Unknown]
  - Atrioventricular block second degree [Unknown]
  - Mitral valve incompetence [Unknown]
  - Polyneuropathy [Unknown]
  - Shoulder arthroplasty [Unknown]
  - Mammoplasty [Unknown]
  - Weight increased [Unknown]
  - Menopause [Unknown]
  - Hyperglycaemia [Unknown]
  - Left ventricular hypertrophy [Unknown]
  - Diastolic dysfunction [Unknown]
  - Dermatitis atopic [Unknown]
  - Overweight [Unknown]
  - Dyspareunia [Unknown]
  - Onychomycosis [Unknown]
  - Type V hyperlipidaemia [Unknown]
  - Constipation [Unknown]
  - Metabolic syndrome [Unknown]
  - Nasal disorder [Unknown]
  - Glucose tolerance impaired [Unknown]
  - Essential hypertension [Unknown]
  - Atrophic vulvovaginitis [Unknown]
  - Muscle strain [Unknown]
  - Tendon injury [Unknown]
  - Bradycardia [Unknown]
  - Pain in extremity [Unknown]
  - Arthralgia [Unknown]
  - Fatigue [Unknown]
  - Product dose omission issue [Unknown]
  - Hysterectomy [Unknown]

NARRATIVE: CASE EVENT DATE: 20230101
